FAERS Safety Report 4437071-2 (Version None)
Quarter: 2004Q3

REPORT INFORMATION
  Report Type: 
  Country: None (occurrence: None)
  Receive Date: 20040830
  Receipt Date: 20040830
  Transmission Date: 20050211
  Serious: Yes (Other)
  Sender: FDA-Public Use
  Company Number: DE-GLAXOSMITHKLINE-D0044512A

PATIENT
  Age: 38 Year
  Sex: Male
  Weight: 63 kg

DRUGS (3)
  1. AVANDAMET [Suspect]
     Dosage: 502MG TWICE PER DAY
     Route: 065
     Dates: start: 20031201
  2. TELMISARTAN + HYDROCHLOROTHIAZIDE [Concomitant]
     Indication: HYPERTENSION
     Route: 065
  3. OMEPRAZOLE [Concomitant]
     Indication: GASTRITIS
     Route: 065

REACTIONS (1)
  - VERTIGO [None]
